FAERS Safety Report 18670116 (Version 2)
Quarter: 2021Q1

REPORT INFORMATION
  Report Type: Report from Study
  Country: US (occurrence: US)
  Receive Date: 20201228
  Receipt Date: 20210111
  Transmission Date: 20210419
  Serious: Yes (Other)
  Sender: FDA-Public Use
  Company Number: US-GLAXOSMITHKLINE-US2020217462

PATIENT
  Age: 59 Year
  Sex: Female

DRUGS (3)
  1. REFRESH P.M. [Suspect]
     Active Substance: MINERAL OIL\PETROLATUM
     Indication: PHOTOPHOBIA
     Dosage: UNK
     Route: 065
  2. REFRESH P.M. [Suspect]
     Active Substance: MINERAL OIL\PETROLATUM
     Indication: VISION BLURRED
  3. BELANTAMAB MAFODOTIN. [Suspect]
     Active Substance: BELANTAMAB MAFODOTIN
     Indication: PLASMA CELL MYELOMA
     Dosage: UNK
     Route: 065
     Dates: start: 20201008

REACTIONS (21)
  - Visual acuity reduced [Unknown]
  - Glare [Unknown]
  - Asthenopia [Unknown]
  - Foreign body sensation in eyes [Unknown]
  - Astigmatism [Recovered/Resolved]
  - Headache [Unknown]
  - Myopia [Unknown]
  - Vision blurred [Not Recovered/Not Resolved]
  - Photophobia [Not Recovered/Not Resolved]
  - Eye disorder [Unknown]
  - Dry eye [Unknown]
  - Punctate keratitis [Unknown]
  - Strabismus [Unknown]
  - Lacrimation increased [Unknown]
  - Keratitis [Not Recovered/Not Resolved]
  - Diplopia [Unknown]
  - Visual impairment [Unknown]
  - Night blindness [Unknown]
  - Condition aggravated [Unknown]
  - Keratopathy [Unknown]
  - Discomfort [Unknown]

NARRATIVE: CASE EVENT DATE: 20201029
